FAERS Safety Report 15291740 (Version 2)
Quarter: 2018Q3

REPORT INFORMATION
  Report Type: Spontaneous
  Country: US (occurrence: US)
  Receive Date: 20180817
  Receipt Date: 20180831
  Transmission Date: 20181010
  Serious: Yes (Other)
  Sender: FDA-Public Use
  Company Number: US-JAZZ-JPI-P-025343

PATIENT
  Age: 37 Year
  Sex: Female
  Weight: 66.36 kg

DRUGS (5)
  1. XYREM [Suspect]
     Active Substance: SODIUM OXYBATE
     Dosage: 4.5 G, BID
     Route: 048
     Dates: start: 201209
  2. WESTHROID [Concomitant]
     Active Substance: THYROGLOBULIN
  3. XYREM [Suspect]
     Active Substance: SODIUM OXYBATE
     Indication: NARCOLEPSY
     Dosage: 2.25 G, BID
     Route: 048
     Dates: start: 20120320, end: 20120412
  4. XYREM [Suspect]
     Active Substance: SODIUM OXYBATE
     Dosage: 3 G, BID
     Route: 048
     Dates: start: 20120413, end: 201209
  5. VERAPAMIL [Concomitant]
     Active Substance: VERAPAMIL HYDROCHLORIDE

REACTIONS (6)
  - Trigeminal neuralgia [Recovering/Resolving]
  - Herpes zoster [Unknown]
  - Nephrolithiasis [Not Recovered/Not Resolved]
  - Insomnia [Not Recovered/Not Resolved]
  - Hiatus hernia [Unknown]
  - Fatigue [Recovered/Resolved]

NARRATIVE: CASE EVENT DATE: 2012
